FAERS Safety Report 15947396 (Version 1)
Quarter: 2019Q1

REPORT INFORMATION
  Report Type: Spontaneous
  Country: FR (occurrence: FR)
  Receive Date: 20190211
  Receipt Date: 20190211
  Transmission Date: 20190417
  Serious: Yes (Death, Hospitalization, Congenital Anomaly)
  Sender: FDA-Public Use
  Company Number: FR-MYLANLABS-2019M1012375

PATIENT
  Sex: Male
  Weight: .7 kg

DRUGS (2)
  1. CANDESARTAN. [Suspect]
     Active Substance: CANDESARTAN
     Indication: CONGESTIVE CARDIOMYOPATHY
     Dosage: THE MOTHER OF THE FETUS RECEIVED CANDESARTAN CILEXETIL 16MG/DAY
     Route: 064
  2. BISOPROLOL [Suspect]
     Active Substance: BISOPROLOL
     Indication: CONGESTIVE CARDIOMYOPATHY
     Dosage: THE MOTHER OF THE FETUS RECEIVED BISOPROLOL 5MG/DAY
     Route: 064

REACTIONS (10)
  - Foetal growth restriction [Not Recovered/Not Resolved]
  - Foetal exposure during pregnancy [Fatal]
  - Oligohydramnios [Fatal]
  - Intestinal ischaemia [Not Recovered/Not Resolved]
  - Potter^s syndrome [Fatal]
  - Neonatal anuria [Fatal]
  - Hypocalvaria [Not Recovered/Not Resolved]
  - Hypoventilation neonatal [Fatal]
  - Pulmonary hypoplasia [Fatal]
  - Congenital renal disorder [Not Recovered/Not Resolved]
